FAERS Safety Report 5118283-1 (Version None)
Quarter: 2006Q4

REPORT INFORMATION
  Report Type: 
  Country: None (occurrence: None)
  Receive Date: 20061002
  Receipt Date: 20060810
  Transmission Date: 20070319
  Serious: No
  Sender: FDA-Public Use
  Company Number: US-BRISTOL-MYERS SQUIBB COMPANY-13472121

PATIENT
  Age: 45 Year
  Sex: Male
  Weight: 85 kg

DRUGS (10)
  1. ORENCIA [Suspect]
     Indication: ANKYLOSING SPONDYLITIS
     Dates: start: 20060628
  2. ORENCIA [Suspect]
     Indication: RHEUMATOID ARTHRITIS
     Dates: start: 20060628
  3. METHOTREXATE [Concomitant]
  4. CELEBREX [Concomitant]
  5. LORTAB [Concomitant]
  6. TYLENOL EXTRA STRENGTH [Concomitant]
  7. FISH OIL [Concomitant]
  8. CRESTOR [Concomitant]
  9. ATACAND [Concomitant]
  10. PREVACID [Concomitant]

REACTIONS (1)
  - DRUG INEFFECTIVE [None]
